FAERS Safety Report 10013138 (Version 1)
Quarter: 2014Q1

REPORT INFORMATION
  Report Type: Spontaneous
  Country: BR (occurrence: BR)
  Receive Date: 20140314
  Receipt Date: 20140314
  Transmission Date: 20141002
  Serious: Yes (Other)
  Sender: FDA-Public Use
  Company Number: BR-009507513-1403BRA004631

PATIENT
  Age: 31 Year
  Sex: Female
  Weight: 58 kg

DRUGS (2)
  1. NUVARING [Suspect]
     Indication: CONTRACEPTION
     Dosage: UNK
     Route: 067
     Dates: start: 2007, end: 2009
  2. NUVARING [Suspect]
     Dosage: UNK
     Route: 067

REACTIONS (2)
  - Caesarean section [Recovered/Resolved]
  - Breast prosthesis implantation [Recovered/Resolved]
